FAERS Safety Report 13382250 (Version 6)
Quarter: 2018Q1

REPORT INFORMATION
  Report Type: Report from Study
  Country: CA (occurrence: CA)
  Receive Date: 20170329
  Receipt Date: 20180313
  Transmission Date: 20180508
  Serious: Yes (Other)
  Sender: FDA-Public Use
  Company Number: PHHY2017CA045864

PATIENT
  Age: 46 Year
  Sex: Female

DRUGS (8)
  1. ILARIS [Suspect]
     Active Substance: CANAKINUMAB
     Dosage: 300 MG, 7 WEEKS
     Route: 058
  2. ILARIS [Suspect]
     Active Substance: CANAKINUMAB
     Dosage: UNK
     Route: 065
     Dates: start: 20170717
  3. ILARIS [Suspect]
     Active Substance: CANAKINUMAB
     Dosage: 300 MG, EVERY 4 WEEKS
     Route: 058
     Dates: start: 20170322
  4. ILARIS [Suspect]
     Active Substance: CANAKINUMAB
     Indication: MUCKLE-WELLS SYNDROME
     Dosage: 150 MG, Q 7 WEEKS
     Route: 058
  5. ILARIS [Suspect]
     Active Substance: CANAKINUMAB
     Dosage: 300 MG, EVERY 4 WEEKS
     Route: 058
     Dates: start: 20140617
  6. ILARIS [Suspect]
     Active Substance: CANAKINUMAB
     Dosage: UNK
     Route: 058
     Dates: start: 20170520
  7. ILARIS [Suspect]
     Active Substance: CANAKINUMAB
     Dosage: 300 MG, 8 WEEKS
     Route: 058
  8. ILARIS [Suspect]
     Active Substance: CANAKINUMAB
     Dosage: UNK
     Route: 065
     Dates: start: 20171110

REACTIONS (15)
  - Conjunctivitis [Unknown]
  - Injection site erythema [Unknown]
  - Injection site swelling [Unknown]
  - Skin disorder [Unknown]
  - Fatigue [Unknown]
  - Nausea [Not Recovered/Not Resolved]
  - Somnolence [Unknown]
  - Skin irritation [Not Recovered/Not Resolved]
  - Blood pressure diastolic increased [Unknown]
  - Myalgia [Not Recovered/Not Resolved]
  - Eye irritation [Not Recovered/Not Resolved]
  - Injection site bruising [Unknown]
  - Muckle-Wells syndrome [Unknown]
  - Dizziness [Not Recovered/Not Resolved]
  - Condition aggravated [Unknown]

NARRATIVE: CASE EVENT DATE: 20170322
